FAERS Safety Report 9707109 (Version 1)
Quarter: 2013Q4

REPORT INFORMATION
  Report Type: Spontaneous
  Country: US (occurrence: US)
  Receive Date: 20131125
  Receipt Date: 20131125
  Transmission Date: 20140711
  Serious: No
  Sender: FDA-Public Use
  Company Number: US-PFIZER INC-2013336238

PATIENT
  Age: 65 Year
  Sex: Female
  Weight: 57.6 kg

DRUGS (3)
  1. PRISTIQ [Suspect]
     Indication: DEPRESSION
     Dosage: 50 MG, 2X/DAY
  2. PRISTIQ [Suspect]
     Indication: ANXIETY
  3. TAMOXIFEN [Concomitant]
     Indication: BREAST CANCER
     Dosage: 20 MG, DAILY

REACTIONS (3)
  - Dizziness [Unknown]
  - Headache [Unknown]
  - Hyponatraemia [Unknown]
